FAERS Safety Report 22345089 (Version 3)
Quarter: 2023Q4

REPORT INFORMATION
  Report Type: Spontaneous
  Country: JP (occurrence: JP)
  Receive Date: 20230519
  Receipt Date: 20231212
  Transmission Date: 20240109
  Serious: Yes (Death, Other)
  Sender: FDA-Public Use
  Company Number: JP-OTSUKA-2023_012681

PATIENT
  Age: 7 Decade
  Sex: Female

DRUGS (4)
  1. ICLUSIG [Suspect]
     Active Substance: PONATINIB
     Indication: Product used for unknown indication
     Dosage: 15 MILLIGRAM
     Route: 065
  2. BLINCYTO [Suspect]
     Active Substance: BLINATUMOMAB
     Indication: Acute lymphocytic leukaemia refractory
     Dosage: 9 MICROGRAM, QD
     Route: 042
     Dates: start: 20230315, end: 20230321
  3. BLINCYTO [Suspect]
     Active Substance: BLINATUMOMAB
     Indication: Acute lymphocytic leukaemia recurrent
     Dosage: 28 MICROGRAM, QD
     Route: 042
     Dates: start: 20230322, end: 202306
  4. BLINCYTO [Suspect]
     Active Substance: BLINATUMOMAB
     Dosage: 28 MICROGRAM, QD
     Route: 042
     Dates: start: 20230907, end: 20230918

REACTIONS (7)
  - COVID-19 pneumonia [Fatal]
  - Cardiac arrest [Fatal]
  - Interstitial lung disease [Fatal]
  - Blast cell count increased [Unknown]
  - Flushing [Recovered/Resolved]
  - Hot flush [Recovered/Resolved]
  - Rash [Recovering/Resolving]

NARRATIVE: CASE EVENT DATE: 20230101
